FAERS Safety Report 5259007-7 (Version None)
Quarter: 2007Q1

REPORT INFORMATION
  Report Type: 
  Country: None (occurrence: None)
  Receive Date: 20070305
  Receipt Date: 20070221
  Transmission Date: 20070707
  Serious: Yes (Other)
  Sender: FDA-Public Use
  Company Number: GXKR2007TR01909

PATIENT
  Age: 47 Year
  Sex: Female

DRUGS (1)
  1. DICLOFENAC (NGX) (DICLOFENAC) UNKNOWN [Suspect]
     Indication: BACK PAIN
     Dosage: INTRAMUSCULAR
     Route: 030

REACTIONS (2)
  - EMBOLIA CUTIS MEDICAMENTOSA [None]
  - INJECTION SITE PAIN [None]
